FAERS Safety Report 12745807 (Version 4)
Quarter: 2016Q4

REPORT INFORMATION
  Report Type: Spontaneous
  Country: ES (occurrence: ES)
  Receive Date: 20160915
  Receipt Date: 20161018
  Transmission Date: 20170207
  Serious: Yes (Other)
  Sender: FDA-Public Use
  Company Number: ES-BRISTOL-MYERS SQUIBB COMPANY-BMS-2016-074781

PATIENT
  Age: 16 Year
  Sex: Female

DRUGS (4)
  1. MITOTANE [Suspect]
     Active Substance: MITOTANE
     Indication: ADJUVANT THERAPY
     Dosage: 7 G, QD
     Route: 065
  2. MITOTANE [Suspect]
     Active Substance: MITOTANE
     Indication: ADRENOCORTICAL CARCINOMA
     Dosage: 500 MG, Q12H
     Route: 065
     Dates: start: 200903
  3. MITOTANE [Suspect]
     Active Substance: MITOTANE
     Dosage: 3 G, QD
     Route: 065
     Dates: start: 200908
  4. HYDROCORTISONE. [Suspect]
     Active Substance: HYDROCORTISONE
     Indication: ADRENOCORTICAL CARCINOMA
     Dosage: 50 MG, QD
     Route: 065
     Dates: start: 200903

REACTIONS (3)
  - Off label use [Unknown]
  - Hepatotoxicity [Unknown]
  - Hypercholesterolaemia [Unknown]
